FAERS Safety Report 9216272 (Version 2)
Quarter: 2013Q3

REPORT INFORMATION
  Report Type: Spontaneous
  Country: US (occurrence: US)
  Receive Date: 20130408
  Receipt Date: 20130807
  Transmission Date: 20140515
  Serious: Yes (Life-Threatening)
  Sender: FDA-Public Use
  Company Number: US-BAYER-2013-042604

PATIENT
  Age: 52 Year
  Sex: Female
  Weight: 74.83 kg

DRUGS (7)
  1. YASMIN [Suspect]
     Indication: ACNE
     Dosage: UNK
     Dates: start: 200608, end: 201206
  2. CLONAZEPAM [Concomitant]
     Indication: RESTLESS LEGS SYNDROME
     Dosage: UNK
     Dates: start: 2006, end: 2012
  3. CALCIUM [Concomitant]
     Dosage: UNK
     Dates: start: 2010
  4. MULTIVITAMIN [Concomitant]
     Dosage: UNK
     Dates: start: 2010
  5. NAPROXEN [Concomitant]
     Dosage: UNK
     Dates: start: 20120709
  6. METHYLPREDNISOLONE [Concomitant]
     Dosage: UNK
     Dates: start: 20120709
  7. FLUCONAZOLE [Concomitant]

REACTIONS (8)
  - Deep vein thrombosis [None]
  - Injury [None]
  - Pain [None]
  - Anxiety [None]
  - Anhedonia [None]
  - Fear of disease [None]
  - Local swelling [None]
  - Pain in extremity [None]
